FAERS Safety Report 24734693 (Version 1)
Quarter: 2024Q4

REPORT INFORMATION
  Report Type: Spontaneous
  Country: CA (occurrence: CA)
  Receive Date: 20241214
  Receipt Date: 20241214
  Transmission Date: 20250115
  Serious: Yes (Hospitalization, Other)
  Sender: CELLTRION
  Company Number: CA-CELLTRION INC.-2024CA030932

PATIENT

DRUGS (17)
  1. RITUXIMAB [Suspect]
     Active Substance: RITUXIMAB
     Indication: Mantle cell lymphoma
     Dosage: UNK, CYCLIC
     Route: 058
  2. CISPLATIN [Suspect]
     Active Substance: CISPLATIN
     Indication: Mantle cell lymphoma
     Dosage: UNK, CYCLIC
     Route: 042
  3. CYTARABINE [Suspect]
     Active Substance: CYTARABINE
     Indication: Mantle cell lymphoma
     Dosage: UNK, CYCLIC
     Route: 042
  4. CYCLOPHOSPHAMIDE [Concomitant]
     Active Substance: CYCLOPHOSPHAMIDE
  5. DEXAMETHASONE [Concomitant]
     Active Substance: DEXAMETHASONE
     Route: 065
  6. DOXORUBICIN [Concomitant]
     Active Substance: DOXORUBICIN
  7. FILGRASTIM [Concomitant]
     Active Substance: FILGRASTIM
  8. IMBRUVICA [Concomitant]
     Active Substance: IBRUTINIB
  9. METOCLOPRAMIDE [Concomitant]
     Active Substance: METOCLOPRAMIDE
  10. OLANZAPINE [Concomitant]
     Active Substance: OLANZAPINE
  11. ONDANSETRON [Concomitant]
     Active Substance: ONDANSETRON
  12. PANTOPRAZOLE SODIUM ANHYDROUS [Concomitant]
     Active Substance: PANTOPRAZOLE SODIUM ANHYDROUS
     Route: 065
  13. PREDNISONE [Concomitant]
     Active Substance: PREDNISONE
  14. PROCHLORAZINE [Concomitant]
  15. VINCRISTINE [Concomitant]
     Active Substance: VINCRISTINE
  16. CLONAZEPAM [Concomitant]
     Active Substance: CLONAZEPAM
  17. EMEND [Concomitant]
     Active Substance: APREPITANT

REACTIONS (5)
  - Neutropenic colitis [Recovering/Resolving]
  - Electrolyte imbalance [Recovering/Resolving]
  - Intestinal obstruction [Recovering/Resolving]
  - Acute kidney injury [Recovering/Resolving]
  - Intentional product use issue [Unknown]
